FAERS Safety Report 23103470 (Version 1)
Quarter: 2023Q4

REPORT INFORMATION
  Report Type: Spontaneous
  Country: US (occurrence: US)
  Receive Date: 20231025
  Receipt Date: 20231025
  Transmission Date: 20240109
  Serious: No
  Sender: FDA-Public Use
  Company Number: US-Indoco-000398

PATIENT
  Age: 73 Year
  Sex: Female
  Weight: 59.87 kg

DRUGS (2)
  1. DORZOLAMIDE [Suspect]
     Active Substance: DORZOLAMIDE
     Indication: Glaucoma
     Dosage: OPHTHALMIC (STRENGTH: 2%); TWICE DAILY, ONCE IN THE MORNING AND ONCE IN THE EVENING
     Dates: start: 20230202
  2. LATANOPROST [Concomitant]
     Active Substance: LATANOPROST
     Dosage: FOR TWO YEARS IN THE EVENING

REACTIONS (3)
  - Eye irritation [Unknown]
  - Eye pain [Unknown]
  - Device physical property issue [Unknown]
